FAERS Safety Report 7882910-6 (Version None)
Quarter: 2011Q4

REPORT INFORMATION
  Report Type: 
  Country: None (occurrence: None)
  Receive Date: 20111101
  Receipt Date: 20110622
  Transmission Date: 20120403
  Serious: No
  Sender: FDA-Public Use
  Company Number: US-AMGEN-USASP2011032135

PATIENT
  Sex: Female

DRUGS (5)
  1. CALCIUM [Concomitant]
  2. ENBREL [Suspect]
     Indication: RHEUMATOID ARTHRITIS
     Dosage: 50 MG, QWK
     Dates: start: 20110501
  3. PREDNISONE [Concomitant]
  4. NEXIUM [Concomitant]
  5. FOLIC ACID [Concomitant]

REACTIONS (5)
  - INCREASED TENDENCY TO BRUISE [None]
  - NAUSEA [None]
  - THERMAL BURN [None]
  - FATIGUE [None]
  - IMPAIRED HEALING [None]
